FAERS Safety Report 5179916-7 (Version None)
Quarter: 2006Q4

REPORT INFORMATION
  Report Type: 
  Country: None (occurrence: None)
  Receive Date: 20061211
  Receipt Date: 20061123
  Transmission Date: 20070319
  Serious: Yes (Hospitalization)
  Sender: FDA-Public Use
  Company Number: 215512

PATIENT
  Age: 54 Year
  Sex: Male

DRUGS (13)
  1. BEVACIZUMAB OR PLACEBO(BEVACIZUMAB) PWDR + SOLVENT,INFUSION SOLN, 100M [Suspect]
     Indication: METASTATIC RENAL CELL CARCINOMA
     Dosage: 10 MG/KG, Q2W, INTRAVENOUS
     Route: 042
     Dates: start: 20041010
  2. BEVACIZUMAB OR PLACEBO(BEVACIZUMAB) PWDR + SOLVENT,INFUSION SOLN, 100M [Suspect]
  3. BEVACIZUMAB OR PLACEBO(BEVACIZUMAB) PWDR + SOLVENT,INFUSION SOLN, 100M [Suspect]
  4. BEVACIZUMAB OR PLACEBO(BEVACIZUMAB) PWDR + SOLVENT,INFUSION SOLN, 100M [Suspect]
  5. BEVACIZUMAB OR PLACEBO(BEVACIZUMAB) PWDR + SOLVENT,INFUSION SOLN, 100M [Suspect]
  6. BEVACIZUMAB OR PLACEBO(BEVACIZUMAB) PWDR + SOLVENT,INFUSION SOLN, 100M [Suspect]
  7. INTERFERON ALFA-2A(INTERFERON ALFA-2A) [Suspect]
     Indication: METASTATIC RENAL CELL CARCINOMA
     Dosage: 9 MIU, 3/WEEK, SUBCUTANEOUS
     Route: 058
     Dates: start: 20041011
  8. AMLODIPINE BESYLATE [Concomitant]
  9. POTASSIUM CHLORIDE [Concomitant]
  10. ALLOPURINOL SODIUM [Concomitant]
  11. CIPROFLOXACIN [Concomitant]
  12. UNSPECIFIED DRUG (GENERIC COMPONENT(S) [Concomitant]
  13. AMINOPHYLLINE [Concomitant]

REACTIONS (5)
  - ANURIA [None]
  - BLOOD CREATINE INCREASED [None]
  - HYDRONEPHROSIS [None]
  - METASTASIS [None]
  - METASTATIC NEOPLASM [None]
